FAERS Safety Report 5375974-5 (Version None)
Quarter: 2007Q3

REPORT INFORMATION
  Report Type: 
  Country: None (occurrence: None)
  Receive Date: 20070702
  Receipt Date: 20070611
  Transmission Date: 20080115
  Serious: Yes (Hospitalization)
  Sender: FDA-Public Use
  Company Number: JP-PFIZER INC-2007012805

PATIENT
  Age: 80 Year
  Sex: Female

DRUGS (4)
  1. SALAZOPYRIN [Suspect]
     Indication: COLITIS ULCERATIVE
     Dosage: DAILY DOSE:6GRAM
     Route: 048
     Dates: start: 20061024, end: 20061125
  2. SALAZOPYRIN [Suspect]
     Indication: DIARRHOEA
  3. PREDNISOLONE [Suspect]
     Indication: DIARRHOEA
     Dosage: DAILY DOSE:30MG-TEXT:PER DAY
  4. ANTIBIOTICS [Suspect]

REACTIONS (2)
  - ANTINEUTROPHIL CYTOPLASMIC ANTIBODY INCREASED [None]
  - MALAISE [None]
